FAERS Safety Report 5699899-0 (Version None)
Quarter: 2008Q2

REPORT INFORMATION
  Report Type: 
  Country: None (occurrence: None)
  Receive Date: 20080410
  Receipt Date: 20080403
  Transmission Date: 20081010
  Serious: Yes (Other)
  Sender: FDA-Public Use
  Company Number: US-AVENTIS-200812137US

PATIENT
  Age: 74 Year
  Sex: Male
  Weight: 96 kg

DRUGS (7)
  1. LANTUS [Suspect]
     Dosage: DOSE: 24-26
     Route: 058
     Dates: start: 20070101
  2. ORAL ANTIDIABETICS [Concomitant]
     Dosage: DOSE: UNK
  3. NEXIUM [Concomitant]
     Dosage: DOSE: UNK
  4. SIMVASTATIN [Concomitant]
     Dosage: DOSE: UNK
  5. PLAVIX [Concomitant]
     Dosage: DOSE: UNK
  6. NORVASC [Concomitant]
     Dosage: DOSE: UNK
  7. LYRICA [Concomitant]
     Dosage: DOSE: UNK

REACTIONS (2)
  - BLOOD GLUCOSE INCREASED [None]
  - WEIGHT INCREASED [None]
